FAERS Safety Report 18414777 (Version 1)
Quarter: 2020Q4

REPORT INFORMATION
  Report Type: Spontaneous
  Country: US (occurrence: US)
  Receive Date: 20201021
  Receipt Date: 20201021
  Transmission Date: 20210114
  Serious: Yes (Life-Threatening, Hospitalization)
  Sender: FDA-Public Use
  Company Number: None

PATIENT
  Age: 30 Year
  Sex: Female
  Weight: 61.24 kg

DRUGS (2)
  1. VITAMINS [Concomitant]
     Active Substance: VITAMINS
  2. NEXPLANON [Suspect]
     Active Substance: ETONOGESTREL

REACTIONS (7)
  - Complication associated with device [None]
  - Somnambulism [None]
  - Panic attack [None]
  - Ruptured ectopic pregnancy [None]
  - Fallopian tube disorder [None]
  - Menorrhagia [None]
  - Ovarian cyst [None]

NARRATIVE: CASE EVENT DATE: 20190917
